FAERS Safety Report 10154881 (Version 1)
Quarter: 2014Q2

REPORT INFORMATION
  Report Type: Spontaneous
  Country: US (occurrence: None)
  Receive Date: 20140505
  Receipt Date: 20140505
  Transmission Date: 20141212
  Serious: Yes (Disabling)
  Sender: FDA-Public Use
  Company Number: None

PATIENT
  Age: 39 Year
  Sex: Male

DRUGS (1)
  1. LEVAQUIN 750MG [Suspect]
     Indication: PNEUMONIA
     Dosage: 1 PILL?ONCE DAILY?TAKEN BY MOUTH
     Route: 048
     Dates: start: 20140403, end: 20140410

REACTIONS (7)
  - Hypoaesthesia [None]
  - Musculoskeletal stiffness [None]
  - Pain [None]
  - Weight increased [None]
  - Neuropathy peripheral [None]
  - Tendonitis [None]
  - Joint stiffness [None]
